FAERS Safety Report 18236682 (Version 1)
Quarter: 2020Q3

REPORT INFORMATION
  Report Type: Spontaneous
  Country: US (occurrence: US)
  Receive Date: 20200907
  Receipt Date: 20200907
  Transmission Date: 20201103
  Serious: No
  Sender: FDA-Public Use
  Company Number: US-SUN PHARMACEUTICAL INDUSTRIES LTD-2020R1-258696

PATIENT
  Sex: Female

DRUGS (2)
  1. PRESERVATIVE FREE GLAUCOMA EYE DROPS [Concomitant]
     Indication: PRODUCT USED FOR UNKNOWN INDICATION
     Route: 065
  2. CEQUA [Suspect]
     Active Substance: CYCLOSPORINE
     Indication: DRY EYE
     Dosage: UNK UNK, BID(12 HOURS APART)
     Route: 047

REACTIONS (2)
  - Eye pain [Unknown]
  - Product administration interrupted [Unknown]
